FAERS Safety Report 7593417-8 (Version None)
Quarter: 2011Q3

REPORT INFORMATION
  Report Type: 
  Country: None (occurrence: None)
  Receive Date: 20110706
  Receipt Date: 20110624
  Transmission Date: 20111222
  Serious: Yes (Other)
  Sender: FDA-Public Use
  Company Number: US-ELI_LILLY_AND_COMPANY-US201106008182

PATIENT
  Sex: Male

DRUGS (1)
  1. CIALIS [Suspect]

REACTIONS (6)
  - SCAR [None]
  - FRACTURE OF PENIS [None]
  - PAINFUL ERECTION [None]
  - HYPOAESTHESIA [None]
  - PENIS INJURY [None]
  - PENILE PAIN [None]
